FAERS Safety Report 11937083 (Version 13)
Quarter: 2017Q4

REPORT INFORMATION
  Report Type: Spontaneous
  Country: US (occurrence: US)
  Receive Date: 20160121
  Receipt Date: 20171023
  Transmission Date: 20180320
  Serious: Yes (Death, Hospitalization)
  Sender: FDA-Public Use
  Company Number: US-ACTELION-A-NJ2016-130181

PATIENT
  Age: 66 Year
  Sex: Female
  Weight: 53.52 kg

DRUGS (13)
  1. ASPIRIN. [Concomitant]
     Active Substance: ASPIRIN
  2. DIGITEK [Concomitant]
     Active Substance: DIGOXIN
  3. OPSUMIT [Suspect]
     Active Substance: MACITENTAN
     Indication: PULMONARY ARTERIAL HYPERTENSION
     Dosage: 10 MG, QD
     Route: 048
     Dates: start: 20140502, end: 20170909
  4. LASIX [Concomitant]
     Active Substance: FUROSEMIDE
  5. VELETRI [Suspect]
     Active Substance: EPOPROSTENOL
     Dosage: 28 NG/KG, PER MIN
     Route: 042
  6. REVATIO [Concomitant]
     Active Substance: SILDENAFIL CITRATE
     Dosage: 20 MG, TID
     Dates: start: 201503
  7. PEPCID [Concomitant]
     Active Substance: FAMOTIDINE
  8. DILTIAZEM CD [Concomitant]
     Active Substance: DILTIAZEM
  9. DOPAMINE [Concomitant]
     Active Substance: DOPAMINE\DOPAMINE HYDROCHLORIDE
  10. CELLCEPT [Concomitant]
     Active Substance: MYCOPHENOLATE MOFETIL\MYCOPHENOLATE MOFETIL HYDROCHLORIDE
  11. VELETRI [Suspect]
     Active Substance: EPOPROSTENOL
     Indication: PULMONARY ARTERIAL HYPERTENSION
     Dosage: 21 NG/KG, PER MIN
     Route: 042
     Dates: start: 20140315, end: 20170909
  12. IRON [Concomitant]
     Active Substance: IRON
  13. VITAMIN D3 [Concomitant]
     Active Substance: CHOLECALCIFEROL

REACTIONS (14)
  - Vomiting [Not Recovered/Not Resolved]
  - Diarrhoea [Not Recovered/Not Resolved]
  - Pulmonary arterial hypertension [Fatal]
  - Dyspnoea [Unknown]
  - Fluid overload [Unknown]
  - Oedema [Unknown]
  - Condition aggravated [Fatal]
  - Pleural effusion [Unknown]
  - Right ventricular failure [Fatal]
  - Hypoxia [Fatal]
  - Nausea [Unknown]
  - Respiratory failure [Fatal]
  - Interstitial lung disease [Unknown]
  - Heart rate increased [Unknown]

NARRATIVE: CASE EVENT DATE: 20160105
